FAERS Safety Report 14766863 (Version 1)
Quarter: 2018Q2

REPORT INFORMATION
  Report Type: Report from Study
  Country: CA (occurrence: CA)
  Receive Date: 20180417
  Receipt Date: 20180417
  Transmission Date: 20180711
  Serious: Yes (Other)
  Sender: FDA-Public Use
  Company Number: CA-BRISTOL-MYERS SQUIBB COMPANY-BMS-2016-113708

PATIENT
  Age: 65 Year
  Sex: Female

DRUGS (1)
  1. ABATACEPT [Suspect]
     Active Substance: ABATACEPT
     Indication: RHEUMATOID ARTHRITIS
     Dosage: 750 MG, Q4WK
     Route: 042
     Dates: start: 20160614

REACTIONS (10)
  - Chest pain [Recovered/Resolved]
  - Musculoskeletal stiffness [Unknown]
  - Gastroenteritis viral [Unknown]
  - Vomiting [Unknown]
  - Fatigue [Unknown]
  - Swelling [Recovering/Resolving]
  - Thyroid disorder [Unknown]
  - Pain in extremity [Recovered/Resolved]
  - Diarrhoea [Unknown]
  - Atrial flutter [Unknown]

NARRATIVE: CASE EVENT DATE: 20170508
